FAERS Safety Report 21628917 (Version 1)
Quarter: 2022Q4

REPORT INFORMATION
  Report Type: Report from Study
  Country: GB (occurrence: GB)
  Receive Date: 20221122
  Receipt Date: 20221122
  Transmission Date: 20230112
  Serious: Yes (Hospitalization, Other)
  Sender: FDA-Public Use
  Company Number: GB-BRISTOL-MYERS SQUIBB COMPANY-2022-141612

PATIENT
  Age: 70 Year
  Sex: Male
  Weight: 69.5 kg

DRUGS (10)
  1. PACLITAXEL [Suspect]
     Active Substance: PACLITAXEL
     Indication: Pancreatic carcinoma
     Route: 042
     Dates: start: 20210324
  2. GEMCITABINE [Suspect]
     Active Substance: GEMCITABINE
     Indication: Pancreatic carcinoma
     Route: 042
     Dates: start: 20210324, end: 20210526
  3. DALTEPARIN [Concomitant]
     Active Substance: DALTEPARIN
     Indication: Thrombosis prophylaxis
     Route: 058
     Dates: start: 20210602
  4. AMOXICILLIN\CLAVULANATE POTASSIUM [Concomitant]
     Active Substance: AMOXICILLIN\CLAVULANATE POTASSIUM
     Indication: Prophylaxis
     Route: 048
     Dates: start: 20210602
  5. AMLODIPINE [Concomitant]
     Active Substance: AMLODIPINE BESYLATE
     Indication: Prophylaxis
     Route: 048
     Dates: start: 20210602
  6. BENDROFLUMETHIAZIDE [Concomitant]
     Active Substance: BENDROFLUMETHIAZIDE
     Indication: Prophylaxis
     Route: 048
     Dates: start: 20210602
  7. DOXAZOSIN MESYLATE [Concomitant]
     Active Substance: DOXAZOSIN MESYLATE
     Indication: Prophylaxis
     Route: 048
     Dates: start: 20210602
  8. PANTOPRAZOLE [Concomitant]
     Active Substance: PANTOPRAZOLE
     Indication: Antacid therapy
     Route: 048
     Dates: start: 20210602
  9. RAMIPRIL [Concomitant]
     Active Substance: RAMIPRIL
     Indication: Prophylaxis
     Route: 048
     Dates: start: 20210602
  10. CREON [Concomitant]
     Active Substance: PANCRELIPASE AMYLASE\PANCRELIPASE LIPASE\PANCRELIPASE PROTEASE
     Indication: Prophylaxis
     Dosage: WITH MEALS
     Route: 048
     Dates: start: 20210602

REACTIONS (1)
  - Cholangitis [Recovered/Resolved]

NARRATIVE: CASE EVENT DATE: 20210602
